FAERS Safety Report 16916589 (Version 1)
Quarter: 2019Q4

REPORT INFORMATION
  Report Type: Report from Study
  Country: None (occurrence: CA)
  Receive Date: 20191014
  Receipt Date: 20191014
  Transmission Date: 20200122
  Serious: Yes (Other)
  Sender: FDA-Public Use
  Company Number: CA-ABBVIE-19K-028-2955073-00

PATIENT
  Age: 7 Year
  Sex: Male

DRUGS (3)
  1. HUMIRA [Suspect]
     Active Substance: ADALIMUMAB
     Indication: JUVENILE IDIOPATHIC ARTHRITIS
     Route: 058
     Dates: start: 20151118
  2. METHOTREXATE. [Suspect]
     Active Substance: METHOTREXATE
     Indication: JUVENILE IDIOPATHIC ARTHRITIS
     Route: 048
     Dates: end: 2019
  3. METHOTREXATE. [Suspect]
     Active Substance: METHOTREXATE
     Route: 058
     Dates: start: 2019

REACTIONS (4)
  - Arthrodesis [Recovering/Resolving]
  - Treatment noncompliance [Unknown]
  - Uveitis [Recovering/Resolving]
  - Juvenile idiopathic arthritis [Recovering/Resolving]

NARRATIVE: CASE EVENT DATE: 201905
